FAERS Safety Report 20224592 (Version 1)
Quarter: 2021Q4

REPORT INFORMATION
  Report Type: Spontaneous
  Country: US (occurrence: None)
  Receive Date: 20211223
  Receipt Date: 20211223
  Transmission Date: 20220303
  Serious: Yes (Other)
  Sender: FDA-Public Use
  Company Number: 2021A886064

PATIENT
  Age: 105 Month
  Sex: Male
  Weight: 52.6 kg

DRUGS (7)
  1. SEROQUEL [Suspect]
     Active Substance: QUETIAPINE FUMARATE
     Dosage: UNKNOWN
     Route: 048
  2. ABILIFY [Suspect]
     Active Substance: ARIPIPRAZOLE
     Indication: Disruptive mood dysregulation disorder
     Dosage: 10.0MG UNKNOWN
     Route: 065
     Dates: start: 2016, end: 2016
  3. ABILIFY [Suspect]
     Active Substance: ARIPIPRAZOLE
     Indication: Disruptive mood dysregulation disorder
     Dosage: UNKNOWN
     Route: 065
  4. ARIPIPRAZOLE [Suspect]
     Active Substance: ARIPIPRAZOLE
     Indication: Disruptive mood dysregulation disorder
     Dosage: 10.0MG UNKNOWN
     Route: 065
     Dates: start: 201605, end: 20170118
  5. ARIPIPRAZOLE [Suspect]
     Active Substance: ARIPIPRAZOLE
     Indication: Disruptive mood dysregulation disorder
     Dosage: UNKNOWN
     Route: 065
  6. LATUDA [Suspect]
     Active Substance: LURASIDONE HYDROCHLORIDE
     Dosage: UNKNOWN
     Route: 065
  7. CLONIDINE [Concomitant]
     Active Substance: CLONIDINE
     Indication: Insomnia

REACTIONS (14)
  - Suicidal ideation [Unknown]
  - Seizure [Unknown]
  - Stress [Unknown]
  - Screaming [Unknown]
  - Injury [Unknown]
  - Erythema [Unknown]
  - Bruxism [Unknown]
  - Nausea [Unknown]
  - Psychomotor hyperactivity [Unknown]
  - Somnolence [Unknown]
  - Drug ineffective [Unknown]
  - Inability to afford medication [Unknown]
  - Insurance issue [Unknown]
  - Product use in unapproved indication [Unknown]

NARRATIVE: CASE EVENT DATE: 20160901
